FAERS Safety Report 4676411-6 (Version None)
Quarter: 2005Q2

REPORT INFORMATION
  Report Type: 
  Country: None (occurrence: None)
  Receive Date: 20050527
  Receipt Date: 20050308
  Transmission Date: 20051028
  Serious: No
  Sender: FDA-Public Use
  Company Number: US-GLAXOSMITHKLINE-A0548706A

PATIENT
  Sex: Male

DRUGS (1)
  1. WELLBUTRIN XL [Suspect]
     Indication: DRUG USE FOR UNKNOWN INDICATION
     Dosage: 300MG THREE TIMES PER DAY
     Route: 048

REACTIONS (10)
  - ACCIDENTAL OVERDOSE [None]
  - DYSPHEMIA [None]
  - FEELING JITTERY [None]
  - INFLUENZA LIKE ILLNESS [None]
  - MEDICATION ERROR [None]
  - NAUSEA [None]
  - PAIN [None]
  - RESTLESSNESS [None]
  - TREMOR [None]
  - VOMITING [None]
